FAERS Safety Report 7046891-X (Version None)
Quarter: 2010Q4

REPORT INFORMATION
  Report Type: 
  Country: None (occurrence: None)
  Receive Date: 20101015
  Receipt Date: 20101005
  Transmission Date: 20110411
  Serious: Yes (Hospitalization)
  Sender: FDA-Public Use
  Company Number: PHHY2009TW61019

PATIENT

DRUGS (1)
  1. EXJADE [Suspect]
     Dosage: 1250 MG, UNK
     Route: 048

REACTIONS (4)
  - ABDOMINAL DISTENSION [None]
  - NASOPHARYNGITIS [None]
  - NAUSEA [None]
  - PNEUMONIA [None]
